FAERS Safety Report 4842199-9 (Version None)
Quarter: 2005Q4

REPORT INFORMATION
  Report Type: 
  Country: None (occurrence: None)
  Receive Date: 20051129
  Receipt Date: 20051031
  Transmission Date: 20060501
  Serious: Yes (Hospitalization)
  Sender: FDA-Public Use
  Company Number: OMPQ-NO-0511L-1440

PATIENT
  Age: 65 Year
  Sex: Male

DRUGS (6)
  1. OMNIPAQUE 140 [Suspect]
     Indication: ABDOMINAL PAIN
     Dosage: 100 ML, SINGLE DOSE, I.V.
     Route: 042
     Dates: start: 20040512, end: 20040512
  2. OMNIPAQUE 140 [Suspect]
     Indication: DYSPNOEA
     Dosage: 100 ML, SINGLE DOSE, I.V.
     Route: 042
     Dates: start: 20040512, end: 20040512
  3. OMNIPAQUE 140 [Suspect]
     Indication: HEPATIC TRAUMA
     Dosage: 100 ML, SINGLE DOSE, I.V.
     Route: 042
     Dates: start: 20040512, end: 20040512
  4. OMNIPAQUE 140 [Suspect]
     Indication: PANCREATIC INJURY
     Dosage: 100 ML, SINGLE DOSE, I.V.
     Route: 042
     Dates: start: 20040512, end: 20040512
  5. OMNIPAQUE 140 [Suspect]
     Indication: SPLENIC INJURY
     Dosage: 100 ML, SINGLE DOSE, I.V.
     Route: 042
     Dates: start: 20040512, end: 20040512
  6. GLUCOSE ACETATED RINGER'S SOLUTION (VEEN-F) [Concomitant]

REACTIONS (5)
  - CONDITION AGGRAVATED [None]
  - CONTRAST MEDIA REACTION [None]
  - DISSEMINATED INTRAVASCULAR COAGULATION [None]
  - PANCREATITIS [None]
  - THERAPY NON-RESPONDER [None]
